FAERS Safety Report 6895503-4 (Version None)
Quarter: 2010Q3

REPORT INFORMATION
  Report Type: 
  Country: None (occurrence: None)
  Receive Date: 20100802
  Receipt Date: 20100723
  Transmission Date: 20110219
  Serious: Yes (Other)
  Sender: FDA-Public Use
  Company Number: PHHY2010JP48902

PATIENT
  Age: 62 Year
  Sex: Female

DRUGS (3)
  1. COMTAN [Suspect]
     Indication: PARKINSON'S DISEASE
     Dosage: 100 MG, QD
     Route: 048
  2. PRAMIPEXOLE DIHYDROCHLORIDE [Suspect]
     Dosage: 1.5 MG, QD
     Route: 048
  3. MENESIT [Concomitant]
     Dosage: 300 MG, UNK
     Route: 048

REACTIONS (1)
  - LOSS OF CONSCIOUSNESS [None]
